FAERS Safety Report 10570189 (Version 1)
Quarter: 2014Q4

REPORT INFORMATION
  Report Type: Report from Study
  Country: CN (occurrence: CN)
  Receive Date: 20141107
  Receipt Date: 20141107
  Transmission Date: 20150529
  Serious: Yes (Other)
  Sender: FDA-Public Use
  Company Number: CN-ROCHE-1482105

PATIENT

DRUGS (2)
  1. BEVACIZUMAB [Suspect]
     Active Substance: BEVACIZUMAB
     Indication: PANCREATIC CARCINOMA
     Route: 065
  2. PACLITAXEL. [Suspect]
     Active Substance: PACLITAXEL
     Indication: PANCREATIC CARCINOMA
     Route: 065

REACTIONS (11)
  - Rash [Unknown]
  - Haemoglobin decreased [Unknown]
  - Asthenia [Unknown]
  - Gastrointestinal perforation [Unknown]
  - Vomiting [Unknown]
  - Haemorrhage [Unknown]
  - Granulocytopenia [Unknown]
  - Thrombocytopenia [Unknown]
  - Nausea [Unknown]
  - Neurotoxicity [Unknown]
  - Proteinuria [Unknown]
